FAERS Safety Report 20911033 (Version 2)
Quarter: 2022Q3

REPORT INFORMATION
  Report Type: Spontaneous
  Country: US (occurrence: None)
  Receive Date: 20220603
  Receipt Date: 20220701
  Transmission Date: 20221027
  Serious: No
  Sender: FDA-Public Use
  Company Number: 2022A176963

PATIENT
  Age: 836 Month
  Sex: Female
  Weight: 78.5 kg

DRUGS (1)
  1. SYMBICORT [Suspect]
     Active Substance: BUDESONIDE\FORMOTEROL FUMARATE DIHYDRATE
     Indication: Chronic obstructive pulmonary disease
     Dosage: 80/4.5 2 PUFFS TWICE EACH DAY
     Route: 055
     Dates: start: 20220406

REACTIONS (5)
  - Dyspnoea [Not Recovered/Not Resolved]
  - Incorrect dose administered by device [Unknown]
  - Device malfunction [Unknown]
  - Product use issue [Unknown]
  - Wrong technique in device usage process [Unknown]

NARRATIVE: CASE EVENT DATE: 20220401
